FAERS Safety Report 10757181 (Version 2)
Quarter: 2015Q1

REPORT INFORMATION
  Report Type: Spontaneous
  Country: JP (occurrence: None)
  Receive Date: 20150130
  Receipt Date: 20150212
  Transmission Date: 20150721
  Serious: Yes (Death)
  Sender: FDA-Public Use
  Company Number: 2015BCR00015

PATIENT
  Age: 94 Year
  Sex: Female

DRUGS (8)
  1. BESACOLIN (BETHANECHOL CHLORIDE) [Concomitant]
  2. EBRANTIL (URAPIDIL) [Concomitant]
     Active Substance: URAPIDIL
  3. ZYLORIC (ALLOPURINOL) [Concomitant]
     Active Substance: ALLOPURINOL
  4. DIART (AZOSEMIDE) [Concomitant]
  5. ATELEC (CILNIDIPINE) [Concomitant]
     Active Substance: CILNIDIPINE
  6. PL (SALICYLAMIDE/ACETAMINOPHEN/ANHYDROUS CAFFEINE/PROMETHAZINE METHYLENEDISALICYLATE) [Concomitant]
  7. RAPIACTA [Suspect]
     Active Substance: PERAMIVIR
     Indication: INFLUENZA
     Route: 042
     Dates: start: 20150113, end: 20150113
  8. MOHRUS TAPE (KETOPROFEN) [Concomitant]

REACTIONS (9)
  - Loss of consciousness [None]
  - Cardio-respiratory arrest [None]
  - Sudden death [None]
  - Cough [None]
  - Mydriasis [None]
  - Dehydration [None]
  - Pulmonary embolism [None]
  - Deep vein thrombosis [None]
  - Renal failure [None]

NARRATIVE: CASE EVENT DATE: 20150113
